FAERS Safety Report 5781607-6 (Version None)
Quarter: 2008Q2

REPORT INFORMATION
  Report Type: 
  Country: None (occurrence: None)
  Receive Date: 20080623
  Receipt Date: 20070627
  Transmission Date: 20081010
  Serious: No
  Sender: FDA-Public Use
  Company Number: US-ASTRAZENECA-2007UW15499

PATIENT
  Age: 65 Year
  Sex: Female
  Weight: 64 kg

DRUGS (4)
  1. RHINOCORT [Suspect]
     Indication: SINUS DISORDER
     Dosage: 1 PEN
     Route: 045
     Dates: start: 20070626
  2. LEVAQUIN [Concomitant]
  3. DIABETIC MEDICATIONS [Concomitant]
     Indication: DIABETES MELLITUS
  4. ALAVERT [Concomitant]

REACTIONS (1)
  - INSOMNIA [None]
